FAERS Safety Report 7984431-9 (Version None)
Quarter: 2011Q4

REPORT INFORMATION
  Report Type: 
  Country: None (occurrence: None)
  Receive Date: 20111216
  Receipt Date: 20111205
  Transmission Date: 20120403
  Serious: Yes (Other)
  Sender: FDA-Public Use
  Company Number: FR-ELI_LILLY_AND_COMPANY-FR201102001587

PATIENT
  Age: 84 Year
  Sex: Female

DRUGS (6)
  1. FORTEO [Suspect]
     Indication: OSTEOPOROSIS
     Dosage: 20 UG, DAILY (1/D)
     Route: 058
     Dates: start: 20100221
  2. SOTALOL HCL [Concomitant]
     Dosage: 0.5 DF, QD
     Route: 048
     Dates: start: 20110211
  3. CALCIUM CARBONATE [Concomitant]
     Indication: SUPPLEMENTATION THERAPY
     Dosage: 1 DF, QD
     Route: 048
     Dates: start: 20000101
  4. UVEDOSE [Concomitant]
     Indication: SUPPLEMENTATION THERAPY
     Dosage: 1 DF, BIMESTRIAL
     Route: 048
     Dates: start: 20100221
  5. LORAZEPAM [Concomitant]
     Dosage: 0.5 DF, EACH EVENING
     Route: 048
  6. SOTALOL HCL [Concomitant]
     Indication: EXTRASYSTOLES
     Dosage: 0.5 DF, BID
     Route: 048
     Dates: start: 20000101, end: 20110204

REACTIONS (2)
  - BRADYCARDIA [None]
  - DEHYDRATION [None]
